FAERS Safety Report 5143867-4 (Version None)
Quarter: 2006Q4

REPORT INFORMATION
  Report Type: 
  Country: None (occurrence: None)
  Receive Date: 20061102
  Receipt Date: 20061102
  Transmission Date: 20070319
  Serious: Yes (Disabling)
  Sender: FDA-Public Use
  Company Number: None

PATIENT
  Age: 62 Year
  Sex: Female

DRUGS (1)
  1. AVASTIN [Suspect]
     Indication: OVARIAN CANCER
     Dosage: 10 MG/KG = 870 MG EVERY 2 WKS IV
     Route: 042
     Dates: start: 20060717, end: 20060814

REACTIONS (2)
  - NEUROLOGICAL SYMPTOM [None]
  - PARALYSIS [None]
